FAERS Safety Report 7592808-9 (Version None)
Quarter: 2011Q3

REPORT INFORMATION
  Report Type: 
  Country: None (occurrence: None)
  Receive Date: 20110706
  Receipt Date: 20110628
  Transmission Date: 20111222
  Serious: Yes (Other)
  Sender: FDA-Public Use
  Company Number: US-PFIZER INC-2011097993

PATIENT
  Sex: Female

DRUGS (1)
  1. CELEBREX [Suspect]
     Indication: MYALGIA
     Dosage: UNK

REACTIONS (4)
  - URTICARIA [None]
  - RASH [None]
  - SWELLING FACE [None]
  - SWELLING [None]
